FAERS Safety Report 4919120-8 (Version None)
Quarter: 2006Q1

REPORT INFORMATION
  Report Type: 
  Country: None (occurrence: None)
  Receive Date: 20060216
  Receipt Date: 20060208
  Transmission Date: 20060701
  Serious: Yes (Congenital Anomaly, Other)
  Sender: FDA-Public Use
  Company Number: 2006019951

PATIENT
  Sex: Male

DRUGS (3)
  1. ZOLOFT [Suspect]
     Indication: ILL-DEFINED DISORDER
     Dosage: PLACENTAL
     Route: 064
  2. ADDERALL 10 [Suspect]
     Indication: ILL-DEFINED DISORDER
     Dosage: PLACENTAL
     Route: 064
  3. KLONOPIN [Suspect]
     Indication: ILL-DEFINED DISORDER
     Dosage: (0.5 MG), PLACENTAL
     Route: 064
     Dates: start: 20050401

REACTIONS (14)
  - ABDOMINAL PAIN [None]
  - ANO-RECTAL STENOSIS [None]
  - ANORECTAL DISORDER [None]
  - CARDIAC MURMUR [None]
  - DACRYOSTENOSIS CONGENITAL [None]
  - DRUG EXPOSURE DURING PREGNANCY [None]
  - FOETAL DISORDER [None]
  - GASTROOESOPHAGEAL REFLUX DISEASE [None]
  - LIVER DISORDER [None]
  - NEONATAL DISORDER [None]
  - PREGNANCY [None]
  - RENAL DISORDER [None]
  - ULTRASOUND ANTENATAL SCREEN ABNORMAL [None]
  - VOMITING NEONATAL [None]
